FAERS Safety Report 25200827 (Version 1)
Quarter: 2025Q2

REPORT INFORMATION
  Report Type: Spontaneous
  Country: US (occurrence: US)
  Receive Date: 20250415
  Receipt Date: 20250415
  Transmission Date: 20250717
  Serious: Yes (Hospitalization, Other)
  Sender: AMGEN
  Company Number: US-AMGEN-USASP2025068552

PATIENT
  Age: 14 Year
  Sex: Female

DRUGS (8)
  1. PREDNISONE [Suspect]
     Active Substance: PREDNISONE
     Indication: Immunosuppression
     Route: 065
  2. TACROLIMUS [Concomitant]
     Active Substance: TACROLIMUS
     Indication: Immunosuppression
     Dosage: 4 MILLIGRAM, Q12H WITH A GOAL TROUGH OF 4-6 NG/ML
     Route: 065
  3. TACROLIMUS [Concomitant]
     Active Substance: TACROLIMUS
     Dosage: 1 MILLIGRAM, Q12H
     Route: 065
  4. TACROLIMUS [Concomitant]
     Active Substance: TACROLIMUS
     Dosage: 5 MILLIGRAM, Q12H WITH A GOAL TROUGH OF 4-6 NG/ML
     Route: 065
  5. MYCOPHENOLIC ACID [Concomitant]
     Active Substance: MYCOPHENOLIC ACID
     Indication: Immunosuppression
     Route: 065
  6. PHENYTOIN [Concomitant]
     Active Substance: PHENYTOIN
     Dosage: 200 MILLIGRAM, Q12H
     Route: 040
  7. PHENYTOIN [Concomitant]
     Active Substance: PHENYTOIN
     Route: 040
  8. FOSPHENYTOIN [Concomitant]
     Active Substance: FOSPHENYTOIN
     Route: 065

REACTIONS (5)
  - Acute kidney injury [Unknown]
  - SARS-CoV-2 test positive [Unknown]
  - Fatigue [Unknown]
  - Pyrexia [Unknown]
  - Nausea [Unknown]
